FAERS Safety Report 15305406 (Version 1)
Quarter: 2018Q3

REPORT INFORMATION
  Report Type: Spontaneous
  Country: US (occurrence: US)
  Receive Date: 20180810
  Receipt Date: 20180810
  Transmission Date: 20181010
  Serious: Yes (Hospitalization)
  Sender: FDA-Public Use
  Company Number: None

PATIENT
  Age: 12 Year
  Sex: Male

DRUGS (17)
  1. POLYETH GLYC POW [Concomitant]
  2. CIPRODEX [Concomitant]
     Active Substance: CIPROFLOXACIN HYDROCHLORIDE\DEXAMETHASONE
  3. FLORASTOR [Concomitant]
     Active Substance: SACCHAROMYCES CEREVISIAE
  4. VITAMIN D3 [Concomitant]
     Active Substance: CHOLECALCIFEROL
  5. SODIUM CHLOR NEB [Concomitant]
  6. LEVOFLOXACIN. [Concomitant]
     Active Substance: LEVOFLOXACIN
  7. AMMONIUM LAC [Concomitant]
  8. ALBUTEROL. [Concomitant]
     Active Substance: ALBUTEROL
  9. OSELTAMIVIR [Concomitant]
     Active Substance: OSELTAMIVIR
  10. ARTIFICIAL SOL TEARS [Concomitant]
  11. AMOX/K CLAV [Concomitant]
     Active Substance: AMOXICILLIN\CLAVULANATE POTASSIUM
  12. CALMOSEPTINE [Concomitant]
     Active Substance: MENTHOL\ZINC OXIDE
  13. SMZ?TMP [Concomitant]
     Active Substance: SULFAMETHOXAZOLE\TRIMETHOPRIM
  14. BUDESONIDE. [Concomitant]
     Active Substance: BUDESONIDE
  15. VITAMIN D [Concomitant]
     Active Substance: CHOLECALCIFEROL
  16. REFRESH LACR OIN [Concomitant]
  17. PULMOZYME [Suspect]
     Active Substance: DORNASE ALFA
     Indication: RESPIRATORY FAILURE
     Route: 055
     Dates: start: 20160323

REACTIONS (2)
  - Parainfluenzae virus infection [None]
  - Tracheitis [None]

NARRATIVE: CASE EVENT DATE: 20180801
